FAERS Safety Report 17001365 (Version 2)
Quarter: 2022Q3

REPORT INFORMATION
  Report Type: Report from Study
  Country: US (occurrence: US)
  Receive Date: 20191106
  Receipt Date: 20220712
  Transmission Date: 20221027
  Serious: Yes (Death, Hospitalization, Other)
  Sender: FDA-Public Use
  Company Number: US-SHIRE-US201936596

PATIENT
  Sex: Male

DRUGS (1)
  1. VELAGLUCERASE ALFA [Suspect]
     Active Substance: VELAGLUCERASE ALFA
     Indication: Gaucher^s disease
     Dosage: UNK UNK, 2/MONTH
     Route: 042

REACTIONS (4)
  - Death [Fatal]
  - Hospitalisation [Unknown]
  - Pneumonia [Recovering/Resolving]
  - Product dose omission issue [Unknown]
